FAERS Safety Report 9695039 (Version 2)
Quarter: 2013Q4

REPORT INFORMATION
  Report Type: Report from Study
  Country: DE (occurrence: DE)
  Receive Date: 20131119
  Receipt Date: 20131119
  Transmission Date: 20140711
  Serious: Yes (Hospitalization)
  Sender: FDA-Public Use
  Company Number: PHHO2012DE016007

PATIENT
  Sex: 0

DRUGS (5)
  1. BLINDED ENALAPRIL [Suspect]
     Indication: CARDIAC FAILURE CHRONIC
     Dosage: DOUBLE BLINDED
     Route: 048
     Dates: start: 20121106
  2. BLINDED LCZ696 [Suspect]
     Indication: CARDIAC FAILURE CHRONIC
     Dosage: DOUBLE BLINDED
     Route: 048
     Dates: start: 20121106
  3. BLINDED NO TREATMENT RECEIVED [Suspect]
     Indication: CARDIAC FAILURE CHRONIC
     Dosage: DOUBLE BLINDED
     Route: 048
     Dates: start: 20121106
  4. COMPARATOR ENALAPRIL [Suspect]
     Indication: CARDIAC FAILURE CHRONIC
     Route: 048
     Dates: start: 20120914, end: 20121001
  5. LCZ696 [Suspect]
     Indication: CARDIAC FAILURE CHRONIC
     Route: 048
     Dates: start: 20121003, end: 20121017

REACTIONS (2)
  - Cardiac failure chronic [Recovered/Resolved]
  - Generalised anxiety disorder [Recovered/Resolved]
